FAERS Safety Report 23933926 (Version 1)
Quarter: 2024Q2

REPORT INFORMATION
  Report Type: Spontaneous
  Country: US (occurrence: US)
  Receive Date: 20240603
  Receipt Date: 20240603
  Transmission Date: 20240716
  Serious: Yes (Death, Hospitalization, Disabling, Other)
  Sender: FDA-Public Use
  Company Number: US-SA-SAC20240312000725

PATIENT
  Age: 63 Year
  Sex: Female

DRUGS (1)
  1. DUPIXENT [Suspect]
     Active Substance: DUPILUMAB
     Indication: Asthma
     Dosage: 300 MG, QOW
     Route: 058
     Dates: start: 202305

REACTIONS (13)
  - Peritonitis [Fatal]
  - Duodenal ulcer perforation [Fatal]
  - Wheelchair user [Unknown]
  - Septic shock [Unknown]
  - Hypoxia [Unknown]
  - Respiratory failure [Unknown]
  - Candida infection [Unknown]
  - Hypercapnia [Unknown]
  - Hospitalisation [Unknown]
  - Asthenia [Unknown]
  - Dyspnoea [Unknown]
  - Chronic obstructive pulmonary disease [Unknown]
  - Illness [Unknown]

NARRATIVE: CASE EVENT DATE: 20240101
